FAERS Safety Report 6889252-6 (Version None)
Quarter: 2010Q3

REPORT INFORMATION
  Report Type: 
  Country: None (occurrence: None)
  Receive Date: 20100730
  Receipt Date: 20080204
  Transmission Date: 20110219
  Serious: No
  Sender: FDA-Public Use
  Company Number: US-PFIZER INC-2008008475

PATIENT
  Sex: Female
  Weight: 77.272 kg

DRUGS (13)
  1. LIPITOR [Suspect]
     Indication: BLOOD CHOLESTEROL INCREASED
     Dates: start: 20040101
  2. ZETIA [Concomitant]
  3. ATENOLOL [Concomitant]
  4. AMLODIPINE [Concomitant]
  5. BENAZEPRIL HYDROCHLORIDE [Concomitant]
  6. PLAVIX [Concomitant]
  7. RANITIDINE [Concomitant]
  8. LEVOXYL [Concomitant]
  9. HYDROCORTISONE [Concomitant]
  10. MULTI-VITAMINS [Concomitant]
  11. POTASSIUM [Concomitant]
  12. ACETYLSALICYLIC ACID SRT [Concomitant]
  13. VITAMIN B6 [Concomitant]

REACTIONS (2)
  - BREAST DISCHARGE [None]
  - BREAST INFECTION [None]
